FAERS Safety Report 5812566-5 (Version None)
Quarter: 2008Q3

REPORT INFORMATION
  Report Type: 
  Country: None (occurrence: None)
  Receive Date: 20080717
  Receipt Date: 20080709
  Transmission Date: 20090109
  Serious: Yes (Other)
  Sender: FDA-Public Use
  Company Number: US-ALLERGAN-0606419US

PATIENT
  Sex: Male

DRUGS (2)
  1. BOTOX [Suspect]
     Indication: TORTICOLLIS
     Dosage: 500 UNITS, SINGLE
     Route: 030
     Dates: start: 20060710, end: 20060710
  2. BOTOX [Suspect]
     Indication: MYALGIA

REACTIONS (8)
  - BLOOD CALCIUM INCREASED [None]
  - DYSPHAGIA [None]
  - DYSPHONIA [None]
  - DYSPNOEA [None]
  - LYMPHADENOPATHY [None]
  - SPEECH DISORDER [None]
  - VOCAL CORD PARALYSIS [None]
  - WEIGHT DECREASED [None]
